FAERS Safety Report 25440998 (Version 1)
Quarter: 2025Q2

REPORT INFORMATION
  Report Type: Spontaneous
  Country: US (occurrence: US)
  Receive Date: 20250616
  Receipt Date: 20250616
  Transmission Date: 20250716
  Serious: No
  Sender: UCB
  Company Number: US-UCBSA-2025018134

PATIENT
  Sex: Female
  Weight: 80.285 kg

DRUGS (1)
  1. BIMZELX [Suspect]
     Active Substance: BIMEKIZUMAB-BKZX
     Indication: Psoriatic arthropathy
     Dosage: 160 MILLIGRAM, UNK
     Route: 058
     Dates: start: 202411

REACTIONS (2)
  - Product dose omission issue [Unknown]
  - Product availability issue [Unknown]
